FAERS Safety Report 6029370-8 (Version None)
Quarter: 2009Q1

REPORT INFORMATION
  Report Type: 
  Country: None (occurrence: None)
  Receive Date: 20090105
  Receipt Date: 20081223
  Transmission Date: 20090719
  Serious: Yes (Death, Other)
  Sender: FDA-Public Use
  Company Number: FON_00032_2008

PATIENT
  Age: 57 Year
  Sex: Female

DRUGS (7)
  1. ROCALTROL (ROCALTROL-CALCITROL) (NOT SPECIFIED) [Suspect]
     Indication: DRUG USE FOR UNKNOWN INDICATION
     Dosage: (250 'RG' PER DAY)
     Dates: start: 19950919
  2. METOPROLOL TARTRATE [Suspect]
     Indication: MYOCARDIAL ISCHAEMIA
     Dosage: (200 MG QD)
  3. CAPTOPRIL [Suspect]
     Indication: ESSENTIAL HYPERTENSION
     Dosage: (37.5 MG QD)
  4. NIFEDIPINE [Suspect]
     Indication: MYOCARDIAL ISCHAEMIA
     Dosage: (80 MG QD)
  5. LOPID [Suspect]
     Indication: METABOLIC DISORDER
     Dosage: (1.2 G QD)
     Dates: start: 19950929
  6. FRUSEMIDE /00032601/ (FRUSEMIDE-FUROSEMIDE) [Suspect]
     Indication: GLOMERULONEPHRITIS CHRONIC
     Dosage: (80 MG QD)
  7. ISORDIL [Suspect]
     Indication: MYOCARDIAL ISCHAEMIA
     Dosage: (30 MG QD), 30MG PER DAY

REACTIONS (3)
  - ANGIOEDEMA [None]
  - OBSTRUCTIVE AIRWAYS DISORDER [None]
  - RESPIRATORY DISTRESS [None]
